FAERS Safety Report 13799162 (Version 1)
Quarter: 2017Q3

REPORT INFORMATION
  Report Type: Spontaneous
  Country: US (occurrence: US)
  Receive Date: 20170727
  Receipt Date: 20170727
  Transmission Date: 20171127
  Serious: Yes (Hospitalization)
  Sender: FDA-Public Use
  Company Number: None

PATIENT
  Age: 11 Year
  Sex: Female
  Weight: 41.2 kg

DRUGS (5)
  1. MITOXANTRONE HYDROCHLORIDE. [Suspect]
     Active Substance: MITOXANTRONE HYDROCHLORIDE
     Dates: end: 20161204
  2. ONCASPAR [Suspect]
     Active Substance: PEGASPARGASE
     Dates: end: 20161208
  3. METHOTREXATE. [Suspect]
     Active Substance: METHOTREXATE
     Dates: end: 20161208
  4. DEXAMETHASONE. [Suspect]
     Active Substance: DEXAMETHASONE
     Dates: end: 20161208
  5. VINCRISTINE SULFATE. [Concomitant]
     Active Substance: VINCRISTINE SULFATE
     Dates: end: 20161208

REACTIONS (14)
  - Ileus [None]
  - Staphylococcus test positive [None]
  - General physical health deterioration [None]
  - Viral test positive [None]
  - Colitis [None]
  - Hypertension [None]
  - Haematemesis [None]
  - Melaena [None]
  - Seizure [None]
  - Central nervous system lesion [None]
  - Mental status changes [None]
  - Sepsis [None]
  - Respiratory distress [None]
  - Rectal haemorrhage [None]

NARRATIVE: CASE EVENT DATE: 20161208
